FAERS Safety Report 9461521 (Version 1)
Quarter: 2013Q3

REPORT INFORMATION
  Report Type: Spontaneous
  Country: NZ (occurrence: NZ)
  Receive Date: 20130816
  Receipt Date: 20130816
  Transmission Date: 20140515
  Serious: Yes (Other)
  Sender: FDA-Public Use
  Company Number: PHHY2013NZ088156

PATIENT
  Age: 67 Year
  Sex: Male

DRUGS (2)
  1. IMATINIB [Suspect]
     Dosage: UNK UKN, UNK
  2. GAVISCON [Concomitant]
     Dosage: UNK UKN, UNK
     Route: 048

REACTIONS (1)
  - Prostate cancer [Unknown]
